FAERS Safety Report 19688542 (Version 1)
Quarter: 2021Q3

REPORT INFORMATION
  Report Type: Spontaneous
  Country: US (occurrence: US)
  Receive Date: 20210811
  Receipt Date: 20210811
  Transmission Date: 20211014
  Serious: No
  Sender: FDA-Public Use
  Company Number: US-SA-2021SA261252

PATIENT
  Age: 43 Year
  Sex: Female

DRUGS (2)
  1. DUPIXENT [Suspect]
     Active Substance: DUPILUMAB
     Dosage: 1 DF, QOW
     Route: 058
     Dates: start: 2021
  2. DUPIXENT [Suspect]
     Active Substance: DUPILUMAB
     Indication: PSORIASIS
     Dosage: 2 DF, 1X (PENS)
     Route: 058
     Dates: start: 202106, end: 202106

REACTIONS (4)
  - Product use in unapproved indication [Unknown]
  - Pruritus [Unknown]
  - Burning sensation [Unknown]
  - Rash erythematous [Unknown]

NARRATIVE: CASE EVENT DATE: 202106
